FAERS Safety Report 6524733-6 (Version None)
Quarter: 2010Q1

REPORT INFORMATION
  Report Type: 
  Country: None (occurrence: None)
  Receive Date: 20100104
  Receipt Date: 20091221
  Transmission Date: 20100710
  Serious: Yes (Other)
  Sender: FDA-Public Use
  Company Number: US-BRACCO-003624

PATIENT
  Sex: Female

DRUGS (17)
  1. PROHANCE [Suspect]
     Indication: MASS
     Route: 042
     Dates: start: 20020827, end: 20020827
  2. PROHANCE [Suspect]
     Indication: NUCLEAR MAGNETIC RESONANCE IMAGING ABDOMINAL
     Route: 042
     Dates: start: 20020930, end: 20020930
  3. PROHANCE [Suspect]
     Indication: VOMITING
     Route: 042
     Dates: start: 20020827, end: 20020827
  4. PROHANCE [Suspect]
     Indication: NAUSEA
     Route: 042
     Dates: start: 20020827, end: 20020827
  5. PROHANCE [Suspect]
     Indication: ABDOMINAL PAIN
     Route: 042
     Dates: start: 20020827, end: 20020827
  6. PROHANCE [Suspect]
     Indication: NUCLEAR MAGNETIC RESONANCE IMAGING
     Route: 042
     Dates: start: 20020827, end: 20020827
  7. MULTIHANCE [Suspect]
     Indication: DIAGNOSTIC PROCEDURE
  8. MAGNEVIST [Suspect]
     Indication: VASCULAR TEST
     Route: 065
     Dates: start: 20020729, end: 20020729
  9. MAGNEVIST [Suspect]
     Indication: OBSTRUCTION
     Route: 065
     Dates: start: 20020320, end: 20020320
  10. MAGNEVIST [Suspect]
     Indication: TRANSPLANT FAILURE
     Route: 065
     Dates: start: 20010719, end: 20010719
  11. MAGNEVIST [Suspect]
     Indication: NUCLEAR MAGNETIC RESONANCE IMAGING ABDOMINAL
     Route: 065
     Dates: start: 20020729, end: 20020729
  12. EPOGEN [Concomitant]
  13. TRENTAL [Concomitant]
  14. NEPHROCAPS [Concomitant]
  15. RENAGEL [Concomitant]
  16. OMNISCAN [Suspect]
     Indication: DIAGNOSTIC PROCEDURE
  17. OPTIMARK [Suspect]
     Indication: DIAGNOSTIC PROCEDURE

REACTIONS (1)
  - NEPHROGENIC SYSTEMIC FIBROSIS [None]
